FAERS Safety Report 11055516 (Version 8)
Quarter: 2020Q3

REPORT INFORMATION
  Report Type: Spontaneous
  Country: US (occurrence: US)
  Receive Date: 20150422
  Receipt Date: 20200728
  Transmission Date: 20201102
  Serious: No
  Sender: FDA-Public Use
  Company Number: US-PFIZER INC-2015137465

PATIENT
  Age: 61 Year
  Sex: Female

DRUGS (3)
  1. LYRICA [Suspect]
     Active Substance: PREGABALIN
     Indication: DIABETIC NEUROPATHY
     Dosage: 100 MG, 3X/DAY
     Route: 048
  2. LYRICA [Suspect]
     Active Substance: PREGABALIN
     Indication: TYPE 2 DIABETES MELLITUS
  3. LYRICA [Suspect]
     Active Substance: PREGABALIN
     Indication: FIBROMYALGIA

REACTIONS (3)
  - Sinusitis [Recovered/Resolved]
  - Pain [Unknown]
  - Ear infection [Recovered/Resolved]
